FAERS Safety Report 6055037-6 (Version None)
Quarter: 2009Q1

REPORT INFORMATION
  Report Type: 
  Country: None (occurrence: None)
  Receive Date: 20090122
  Receipt Date: 20090108
  Transmission Date: 20090719
  Serious: Yes (Other)
  Sender: FDA-Public Use
  Company Number: 2009000088

PATIENT
  Age: 50 Year
  Sex: Female

DRUGS (2)
  1. TARCEVA [Suspect]
     Indication: NON-SMALL CELL LUNG CANCER
     Dosage: (150 MG), ORAL
     Route: 048
     Dates: start: 20061025
  2. DEXAMETHASONE TAB [Concomitant]

REACTIONS (4)
  - INTESTINAL PERFORATION [None]
  - PERITONITIS [None]
  - PHARYNGITIS [None]
  - RHINITIS [None]
